FAERS Safety Report 6489102-6 (Version None)
Quarter: 2009Q4

REPORT INFORMATION
  Report Type: 
  Country: None (occurrence: None)
  Receive Date: 20091210
  Receipt Date: 20091202
  Transmission Date: 20100525
  Serious: Yes (Hospitalization)
  Sender: FDA-Public Use
  Company Number: US-SANOFI-AVENTIS-A03200702678

PATIENT
  Age: 76 Year
  Sex: Male

DRUGS (7)
  1. OXALIPLATIN [Suspect]
     Route: 042
     Dates: start: 20070305, end: 20070305
  2. OXALIPLATIN [Suspect]
     Route: 042
     Dates: start: 20070205, end: 20070205
  3. XELODA [Suspect]
     Dosage: DOSE TEXT: X 5 DAYSUNIT DOSE: 1500 MG
     Route: 048
     Dates: start: 20070305, end: 20070305
  4. XELODA [Suspect]
     Route: 048
     Dates: start: 20070205, end: 20070205
  5. AVASTIN [Suspect]
     Dosage: UNIT DOSE: 375 MG
     Route: 042
     Dates: start: 20070305, end: 20070305
  6. AVASTIN [Suspect]
     Route: 042
     Dates: start: 20070205, end: 20070205
  7. CARDIZEM CD [Concomitant]

REACTIONS (1)
  - SUPRAVENTRICULAR TACHYCARDIA [None]
